FAERS Safety Report 10132642 (Version 1)
Quarter: 2014Q2

REPORT INFORMATION
  Report Type: Spontaneous
  Country: US (occurrence: US)
  Receive Date: 20140428
  Receipt Date: 20140428
  Transmission Date: 20141212
  Serious: No
  Sender: FDA-Public Use
  Company Number: US-MALLINCKRODT-T201303461

PATIENT
  Age: 40 Year
  Sex: Male
  Weight: 86.17 kg

DRUGS (8)
  1. HYDROCODONE/ACETAMINOPHEN [Suspect]
     Indication: PAIN
     Dosage: 10/325, 2 TABLETS Q 6 HRS
     Dates: start: 20130613, end: 20130624
  2. MORPHINE SULFATE [Concomitant]
     Indication: BREAKTHROUGH PAIN
     Dosage: 30 MG, QID
  3. EFFEXOR XR [Concomitant]
     Indication: STRESS
     Dosage: 150 MG, BID
  4. EFFEXOR XR [Concomitant]
     Indication: ANXIETY
  5. BENTYL [Concomitant]
     Indication: DIARRHOEA
     Dosage: 10 MG, QID
  6. WELLBUTRIN [Concomitant]
     Indication: STRESS
     Dosage: 150 MG, QD
  7. WELLBUTRIN [Concomitant]
     Indication: ANXIETY
  8. ADVIL                              /00109201/ [Concomitant]
     Indication: PAIN
     Dosage: 3-4 QD IN THE AM

REACTIONS (2)
  - Drug withdrawal syndrome [Recovered/Resolved]
  - Drug ineffective [Recovered/Resolved]
